FAERS Safety Report 10398426 (Version 1)
Quarter: 2014Q3

REPORT INFORMATION
  Report Type: Spontaneous
  Country: US (occurrence: None)
  Receive Date: 20140818
  Receipt Date: 20140818
  Transmission Date: 20150326
  Serious: Yes (Life-Threatening, Disabling)
  Sender: FDA-Public Use
  Company Number: None

PATIENT
  Age: 48 Year
  Sex: Male
  Weight: 92.99 kg

DRUGS (1)
  1. YERVOY [Suspect]
     Active Substance: IPILIMUMAB
     Indication: METASTATIC MALIGNANT MELANOMA
     Dosage: UNKNOWN - HIGH DOSE EVERY 3 WEEKS INTRAVENOUS
     Route: 042

REACTIONS (2)
  - Large intestine perforation [None]
  - Enterocolitis [None]

NARRATIVE: CASE EVENT DATE: 20140616
